FAERS Safety Report 16645388 (Version 1)
Quarter: 2019Q3

REPORT INFORMATION
  Report Type: Spontaneous
  Country: US (occurrence: US)
  Receive Date: 20190729
  Receipt Date: 20190729
  Transmission Date: 20191004
  Serious: Yes (Hospitalization)
  Sender: FDA-Public Use
  Company Number: US-ASTRAZENECA-2019SF06465

PATIENT
  Sex: Female

DRUGS (1)
  1. LYNPARZA [Suspect]
     Active Substance: OLAPARIB
     Indication: CHOLANGIOCARCINOMA
     Route: 048
     Dates: start: 20190702

REACTIONS (2)
  - Abdominal pain [Unknown]
  - Dyspnoea [Unknown]
